FAERS Safety Report 8928194 (Version 1)
Quarter: 2012Q4

REPORT INFORMATION
  Report Type: 
  Country: US (occurrence: US)
  Receive Date: 20121128
  Receipt Date: 20121128
  Transmission Date: 20130627
  Serious: Yes (Other)
  Sender: FDA-Public Use
  Company Number: PHEH2012US021178

PATIENT
  Age: 84 Year
  Sex: Male
  Weight: 78.3 kg

DRUGS (14)
  1. TASIGNA [Suspect]
     Indication: CHRONIC MYELOID LEUKAEMIA
     Dosage: 300 mg, BID
     Route: 048
     Dates: start: 20121012, end: 20121019
  2. ALLOPURINOL [Concomitant]
     Dosage: 300 mg, QD
     Route: 048
  3. FISH OIL [Concomitant]
     Dosage: 200 mg, QD
  4. FLOMAX ^CSL^ [Concomitant]
     Dosage: 0.4 mg, QD
  5. GINKGO BILOBA [Concomitant]
     Dosage: 60 mg, QD
  6. VITAMIN B 12 [Concomitant]
     Dosage: 1000 ug, QD
  7. VITAMIIN C [Concomitant]
     Dosage: 500 mg, QD
  8. VITAMIN D3 [Concomitant]
     Dosage: 2000 U, QD
  9. IRON POLYMALTOSE [Concomitant]
     Dosage: 60 mg, QD
  10. MULTIVITAMINES AND MINERALS [Concomitant]
     Dosage: 1 DF, QD
  11. FOLIC ACID [Concomitant]
     Dosage: 0.8 mg, QD
  12. ELDERBERRY [Concomitant]
     Dosage: 1 TSP, QD
  13. TEA, GREEN [Concomitant]
     Dosage: 20 OT, QD
  14. PRASTATIN [Concomitant]
     Dosage: 0.5 DF, QD

REACTIONS (14)
  - Pancreatitis acute [Recovered/Resolved]
  - Epigastric discomfort [Recovered/Resolved]
  - Eructation [Recovered/Resolved]
  - Abdominal pain upper [Recovered/Resolved]
  - Abdominal distension [Unknown]
  - Pancytopenia [Recovered/Resolved]
  - Decreased activity [Recovered/Resolved]
  - Prostatomegaly [Recovered/Resolved]
  - Deafness [Recovered/Resolved]
  - Anaemia [Recovered/Resolved]
  - Fatigue [Recovered/Resolved]
  - Nausea [Recovered/Resolved]
  - Dyspepsia [Recovered/Resolved]
  - Labelled drug-food interaction medication error [Unknown]
